FAERS Safety Report 10710433 (Version 2)
Quarter: 2015Q1

REPORT INFORMATION
  Report Type: Spontaneous
  Country: IT (occurrence: IT)
  Receive Date: 20150114
  Receipt Date: 20150219
  Transmission Date: 20150721
  Serious: Yes (Other)
  Sender: FDA-Public Use
  Company Number: IT-GLAXOSMITHKLINE-IT2015GSK000109

PATIENT
  Age: 53 Year
  Sex: Female

DRUGS (3)
  1. VALDORM [Suspect]
     Active Substance: VALERIAN
     Indication: PRODUCT USED FOR UNKNOWN INDICATION
     Dosage: 30 UNK, SINGLE
     Dates: start: 20141220, end: 20141220
  2. LAMICTAL [Suspect]
     Active Substance: LAMOTRIGINE
     Indication: PRODUCT USED FOR UNKNOWN INDICATION
     Dosage: 56 UNK, SINGLE
     Route: 048
     Dates: start: 20141220, end: 20141220
  3. TOPAMAX [Suspect]
     Active Substance: TOPIRAMATE
     Indication: PRODUCT USED FOR UNKNOWN INDICATION
     Dosage: UNK
     Route: 048
     Dates: start: 20141220, end: 20141220

REACTIONS (3)
  - Intentional overdose [Unknown]
  - Self injurious behaviour [Unknown]
  - Sopor [Unknown]

NARRATIVE: CASE EVENT DATE: 20141220
